FAERS Safety Report 10203238 (Version 1)
Quarter: 2014Q2

REPORT INFORMATION
  Report Type: Spontaneous
  Country: FI (occurrence: FI)
  Receive Date: 20140529
  Receipt Date: 20140529
  Transmission Date: 20141212
  Serious: Yes (Other)
  Sender: FDA-Public Use
  Company Number: FI-AMGEN-FINSP2014039933

PATIENT
  Age: 68 Year
  Sex: Male

DRUGS (3)
  1. ENBREL [Suspect]
     Indication: RHEUMATOID ARTHRITIS
     Dosage: 50 MG X1, UNK
     Route: 065
     Dates: start: 200607, end: 201403
  2. SALAZOPYRINE [Concomitant]
     Dosage: UNK
     Dates: start: 200607
  3. CORTISONE [Concomitant]
     Dosage: UNK
     Dates: start: 200607

REACTIONS (4)
  - Rectal cancer metastatic [Unknown]
  - Metastases to lung [Unknown]
  - Metastases to liver [Unknown]
  - Metastases to spleen [Unknown]
